FAERS Safety Report 7985729-0 (Version None)
Quarter: 2011Q4

REPORT INFORMATION
  Report Type: 
  Country: None (occurrence: None)
  Receive Date: 20111216
  Receipt Date: 20111216
  Transmission Date: 20120403
  Serious: Yes (Hospitalization)
  Sender: FDA-Public Use
  Company Number: None

PATIENT
  Age: 46 Year
  Sex: Male

DRUGS (4)
  1. VEMURAFENIB [Suspect]
     Indication: MALIGNANT MELANOMA
     Dosage: 960MG
     Route: 048
     Dates: start: 20111207, end: 20111214
  2. PROLEUKIN [Concomitant]
  3. CYCLOPHOSPHAMIDE [Concomitant]
  4. IPILIMUMAB [Concomitant]

REACTIONS (6)
  - CHROMATURIA [None]
  - FATIGUE [None]
  - DYSPNOEA [None]
  - PYREXIA [None]
  - ASTHENIA [None]
  - CHILLS [None]
